FAERS Safety Report 8429526-0 (Version None)
Quarter: 2012Q2

REPORT INFORMATION
  Report Type: 
  Country: None (occurrence: None)
  Receive Date: 20120612
  Receipt Date: 20120605
  Transmission Date: 20120825
  Serious: Yes (Other)
  Sender: FDA-Public Use
  Company Number: JP-PFIZER INC-2012135152

PATIENT

DRUGS (1)
  1. LYRICA [Suspect]

REACTIONS (1)
  - RETINAL HAEMORRHAGE [None]
